FAERS Safety Report 15079183 (Version 7)
Quarter: 2019Q1

REPORT INFORMATION
  Report Type: Spontaneous
  Country: GR (occurrence: GR)
  Receive Date: 20180627
  Receipt Date: 20190118
  Transmission Date: 20190417
  Serious: Yes (Hospitalization)
  Sender: FDA-Public Use
  Company Number: GR-PFIZER INC-2018148982

PATIENT
  Age: 67 Year
  Sex: Male
  Weight: 90 kg

DRUGS (8)
  1. BRILIQUE [Concomitant]
     Active Substance: TICAGRELOR
     Dosage: 90 MG, 2X/DAY (PER 12H)
     Route: 048
  2. SALOSPIR [Concomitant]
     Active Substance: ASPIRIN
     Dosage: 100 MG, 1X/DAY (PER 24H)
     Route: 048
  3. ATORVASTATIN CALCIUM. [Suspect]
     Active Substance: ATORVASTATIN CALCIUM
     Dosage: 40 MG, 1X/DAY (PER 24 HOURS)
     Route: 048
     Dates: start: 2017, end: 2017
  4. EZETROL [Suspect]
     Active Substance: EZETIMIBE
     Indication: HYPERCHOLESTEROLAEMIA
  5. LOSEC [Concomitant]
     Active Substance: OMEPRAZOLE
     Dosage: 20 MG, 1X/DAY (1 DF PER 24H)
     Route: 048
  6. LOPRESOR [Concomitant]
     Active Substance: METOPROLOL
     Dosage: 0.25 DF, 2X/DAY (100 MG DF, PER 12H)
     Route: 048
  7. EZETROL [Suspect]
     Active Substance: EZETIMIBE
     Indication: ACUTE MYOCARDIAL INFARCTION
     Dosage: 10 MG, 1X/DAY (PER 24 HOURS)
     Route: 048
     Dates: start: 20171019, end: 20171117
  8. COAPROVEL [Concomitant]
     Active Substance: HYDROCHLOROTHIAZIDE\IRBESARTAN
     Dosage: 1 DF, 1X/DAY (150 MG/12.5 MG, PER 24H)
     Route: 048

REACTIONS (2)
  - Transaminases increased [Recovered/Resolved]
  - Drug intolerance [Unknown]

NARRATIVE: CASE EVENT DATE: 2017
